FAERS Safety Report 17419531 (Version 1)
Quarter: 2020Q1

REPORT INFORMATION
  Report Type: Spontaneous
  Country: US (occurrence: US)
  Receive Date: 20200214
  Receipt Date: 20200214
  Transmission Date: 20200409
  Serious: Yes (Disabling)
  Sender: FDA-Public Use
  Company Number: None

PATIENT
  Age: 58 Year
  Sex: Male
  Weight: 83.25 kg

DRUGS (5)
  1. VITAMIN D3 [Concomitant]
     Active Substance: CHOLECALCIFEROL
  2. DEXILANT [Suspect]
     Active Substance: DEXLANSOPRAZOLE
     Indication: GASTROOESOPHAGEAL REFLUX DISEASE
     Route: 048
     Dates: start: 20150520, end: 20191020
  3. ZETIA [Concomitant]
     Active Substance: EZETIMIBE
  4. PROBIOTIC [Concomitant]
     Active Substance: PROBIOTICS NOS
  5. LOSARTAN 75MG [Concomitant]

REACTIONS (2)
  - Haemorrhoids [None]
  - Pain [None]
